FAERS Safety Report 10348390 (Version 2)
Quarter: 2014Q3

REPORT INFORMATION
  Report Type: Spontaneous
  Country: US (occurrence: US)
  Receive Date: 20140729
  Receipt Date: 20140729
  Transmission Date: 20150326
  Serious: Yes (Life-Threatening, Hospitalization, Other)
  Sender: FDA-Public Use
  Company Number: US-009507513-2009SP043064

PATIENT
  Sex: Female
  Weight: 90.72 kg

DRUGS (3)
  1. NUVARING [Suspect]
     Active Substance: ETHINYL ESTRADIOL\ETONOGESTREL
     Indication: CONTRACEPTION
     Route: 067
     Dates: start: 20070320, end: 20081020
  2. TRAZODONE HYDROCHLORIDE. [Suspect]
     Active Substance: TRAZODONE HYDROCHLORIDE
     Indication: INSOMNIA
     Dates: start: 200803
  3. SEROQUEL [Suspect]
     Active Substance: QUETIAPINE FUMARATE
     Indication: INSOMNIA

REACTIONS (26)
  - Muscular weakness [Unknown]
  - Deep vein thrombosis [Recovered/Resolved]
  - Costochondritis [Unknown]
  - Rectocele [Unknown]
  - Abdominal pain upper [Not Recovered/Not Resolved]
  - Urinary tract infection [Unknown]
  - Extradural haematoma [Recovered/Resolved]
  - Myofascial pain syndrome [Unknown]
  - Gastritis [Unknown]
  - Nausea [Unknown]
  - Anxiety [Not Recovered/Not Resolved]
  - Depression [Not Recovered/Not Resolved]
  - Pulmonary embolism [Unknown]
  - Insomnia [Not Recovered/Not Resolved]
  - Chest pain [Recovering/Resolving]
  - Urticaria [Recovering/Resolving]
  - Electrocardiogram change [Unknown]
  - Hypersensitivity [Recovering/Resolving]
  - Bacterial vaginosis [Not Recovered/Not Resolved]
  - Menstruation irregular [Unknown]
  - Hypertension [Not Recovered/Not Resolved]
  - Dry mouth [Unknown]
  - Fibrin D dimer increased [Unknown]
  - Constipation [Unknown]
  - Ovarian cyst [Unknown]
  - Venous stenosis [Unknown]

NARRATIVE: CASE EVENT DATE: 20070406
